FAERS Safety Report 4617439-1 (Version None)
Quarter: 2005Q1

REPORT INFORMATION
  Report Type: 
  Country: None (occurrence: None)
  Receive Date: 20050324
  Receipt Date: 20050317
  Transmission Date: 20050727
  Serious: Yes (Other)
  Sender: FDA-Public Use
  Company Number: US-KINGPHARMUSA00001-K200500377

PATIENT
  Age: 55 Year
  Sex: Male

DRUGS (5)
  1. ALTACE [Suspect]
     Indication: MYOCARDIAL ISCHAEMIA
     Dosage: 2.5 MG, QD
     Route: 048
     Dates: start: 20031015
  2. PLAVIX [Suspect]
     Indication: CORONARY ANGIOPLASTY
     Dosage: 75 MG, QD
     Route: 048
     Dates: start: 20031015, end: 20040102
  3. BELOC [Concomitant]
     Indication: MYOCARDIAL ISCHAEMIA
     Dosage: 25 MG, UNK
     Route: 048
     Dates: start: 20031015, end: 20041015
  4. MEVALOTIN [Concomitant]
     Dosage: 20 MG, UNK
     Route: 048
  5. KARDEGIC [Concomitant]
     Dosage: 100 MG, UNK
     Route: 048

REACTIONS (4)
  - GINGIVITIS [None]
  - PERIODONTITIS [None]
  - TOOTH DISORDER [None]
  - TOOTHACHE [None]
